FAERS Safety Report 24531635 (Version 3)
Quarter: 2024Q4

REPORT INFORMATION
  Report Type: Report from Study
  Country: US (occurrence: US)
  Receive Date: 20241022
  Receipt Date: 20241219
  Transmission Date: 20250115
  Serious: Yes (Death, Hospitalization, Other)
  Sender: ACADIA PHARMACEUTICALS
  Company Number: US-ACADIA PHARMACEUTICALS INC.-ACA-2024-PIM-006362

PATIENT
  Age: 79 Year
  Sex: Female

DRUGS (47)
  1. NUPLAZID [Suspect]
     Active Substance: PIMAVANSERIN TARTRATE
     Indication: Parkinson^s disease psychosis
     Dosage: 34 MILLIGRAM, QD
     Route: 048
     Dates: start: 20200609, end: 20241118
  2. ACETAMINOPHEN [Concomitant]
     Active Substance: ACETAMINOPHEN
  3. AMANTADINE [Concomitant]
     Active Substance: AMANTADINE
  4. ASPIRIN [Concomitant]
     Active Substance: ASPIRIN
  5. CARBIDOPA, LEVODOPA AND ENTACAPONE [Concomitant]
     Active Substance: CARBIDOPA\ENTACAPONE\LEVODOPA
  6. CYANOCOBALAMIN [Concomitant]
     Active Substance: CYANOCOBALAMIN
  7. DOCUSATE [Concomitant]
     Active Substance: DOCUSATE
  8. ENTRESTO [Concomitant]
     Active Substance: SACUBITRIL\VALSARTAN
  9. FLUTICASONE PROPIONATE [Concomitant]
     Active Substance: FLUTICASONE PROPIONATE
     Dosage: NASAL
  10. FUROSEMIDE [Concomitant]
     Active Substance: FUROSEMIDE
  11. LOSARTAN [Concomitant]
     Active Substance: LOSARTAN
  12. MELATONIN [Concomitant]
     Active Substance: MELATONIN
     Dosage: 10 MILLIGRAM, QD (TAKE 1 TABLET (10 MG TOTAL) BY MOUTH EVERY NIGHT)
     Route: 048
  13. METOPROLOL [Concomitant]
     Active Substance: METOPROLOL
  14. NITROGLYCERIN [Concomitant]
     Active Substance: NITROGLYCERIN
  15. OMEPRAZOLE [Concomitant]
     Active Substance: OMEPRAZOLE
  16. PRAMIPEXOLE [Concomitant]
     Active Substance: PRAMIPEXOLE\PRAMIPEXOLE DIHYDROCHLORIDE
  17. PRASUGREL [Concomitant]
     Active Substance: PRASUGREL
  18. QUETIAPINE [Concomitant]
     Active Substance: QUETIAPINE
  19. ROSUVASTATIN [Concomitant]
     Active Substance: ROSUVASTATIN
  20. TYLENOL [Concomitant]
     Active Substance: ACETAMINOPHEN
     Indication: Pain
     Dosage: 325 MILLIGRAM, TAKE 1 TABLET (325 MG TOTAL) BY MOUTH ONCE AS NEEDED
     Route: 048
  21. SYMMETREL [Concomitant]
     Active Substance: AMANTADINE HYDROCHLORIDE
     Dosage: 5 MILLILITER, BID, TAKE 5 ML (50 MG TOTAL) BY MOUTH 2 TIMES A DAY.
     Route: 048
  22. ASPIRIN [Concomitant]
     Active Substance: ASPIRIN
     Dosage: TAKE 1 TABLET BY MOUTH DAILY
     Route: 048
  23. BUMEX [Concomitant]
     Active Substance: BUMETANIDE
     Dosage: TAKE 1 TABLET (0.5 MG TOTAL) BY MOUTH DAILY.
     Route: 048
  24. SINEMET [Concomitant]
     Active Substance: CARBIDOPA\LEVODOPA
     Dosage: CARBIDOPA 25 MG-LEVODOPA 100 MG TABLET TAKE 1/2 TABLET BY MOUTH FOUR TIMES A DAY
     Route: 048
  25. STALEVO [Concomitant]
     Active Substance: CARBIDOPA\ENTACAPONE\LEVODOPA
     Dosage: CARBIDOPA 31.25 MG-LEVODOPA 125 MG-ENTACAPONE 200 MG TABLET. TAKE 1 TABLET BY MOUTH 4 TIMES A DAY.
  26. STALEVO [Concomitant]
     Active Substance: CARBIDOPA\ENTACAPONE\LEVODOPA
     Dosage: CARBIDOPA 37.5 MG-LEVODOPA 150 MG-ENTACAPONE 200 MG TABLET (STALEVO)TAKE 1 TABLET BY MOUTH 2 TIMES A
  27. CIPRO [Concomitant]
     Active Substance: CIPROFLOXACIN HYDROCHLORIDE
     Dosage: 500 MILLIGRAM, BID (TAKE 1 TABLET (500 MG TOTAL) BY MOUTH 2 (TWO) TIMES A DAY.)
  28. CELEXA [Concomitant]
     Active Substance: CITALOPRAM HYDROBROMIDE
     Dosage: CITALOPRAM 20 MG TABLET (CELEXA)TAKE 1.5 TABLETS BY MOUTH EVERY DAY
  29. VITAMIN B12 [Concomitant]
     Active Substance: CYANOCOBALAMIN
     Dosage: 1000 MICROGRAM, 1,000 MCG/ML INJECTION SOLUTION (VITAMIN B-12)1 ML (1,000 MCG TOTAL).
  30. DOCUSATE SODIUM [DOCUSATE SODIUM;SENNOSIDE A+B] [Concomitant]
     Dosage: 100 MILLIGRAM (TAKE 1 CAPSULE (100 MG TOTAL) BY MOUTH 3 TIMES A DAY.)
     Route: 048
  31. DOCUSATE SODIUM [DOCUSATE SODIUM;SENNOSIDE A+B] [Concomitant]
     Dosage: 49 MG-51 MG TABLET1 TABLET 2 TIMES A DAY
  32. FARXIGA [Concomitant]
     Active Substance: DAPAGLIFLOZIN PROPANEDIOL
     Dosage: 10 MILLIGRAM, QD (TAKE 1 TABLET (10 MG TOTAL) BY MOUTH DAILY)
     Route: 048
  33. FLONASE [Concomitant]
     Active Substance: FLUTICASONE PROPIONATE
     Dosage: 50 MCG/ACTUATION NASAL SPRAY ADMINISTER INTO EACH NOSTRIL AS NEEDED
  34. LASIX [Concomitant]
     Active Substance: FUROSEMIDE
     Dosage: 40 MILLIGRAM, TAKE 1 TABLET (40 MG TOTAL) BY MOUTH AS NEEDED
     Route: 048
  35. COZAAR [Concomitant]
     Active Substance: LOSARTAN POTASSIUM
     Dosage: 50 MILLIGRAM TAKE 0.5 TABLETS (25 MG TOTAL) BY MOUTH DAILY
     Route: 048
  36. TOPROL XL [Concomitant]
     Active Substance: METOPROLOL SUCCINATE
     Dosage: 25 MILLIGRAM, QD, XL  (24 HR TABLET TAKE 1 TABLET (25 MG TOTAL) BY MOUTH DAILY)
     Route: 048
  37. NITROSTAT [Concomitant]
     Active Substance: NITROGLYCERIN
     Dosage: 0.4 MG SL TABLET PLACE 1 TABLET (0.4 MG TOTAL) UNDER THE TONGUE AS NEEDED
  38. OMEPRAZOLE MAGNESIUM [Concomitant]
     Active Substance: OMEPRAZOLE MAGNESIUM
     Dosage: 20 MILLIGRAM, DELAYED RELEASE PRILOSEC OTC 20 MG TABLET, DELAYED RELEASE
  39. PRILOSEC OTC [Concomitant]
     Active Substance: OMEPRAZOLE MAGNESIUM
     Dosage: 20 MILLIGRAM, QD (20 MG TABLET, DELAYED RELEASE 1 TABLET(S) ORAL TAKE ONCE A DAY)
     Route: 048
  40. POTASSIUM CHLORIDE [Concomitant]
     Active Substance: POTASSIUM CHLORIDE
     Dosage: ER 20 MEQ TABLET, EXTENDED RELEASE(PART/CRYST) (KLOR-CON M20)TAKE BY MOUTH DAILY
     Route: 048
  41. MIRAPEX [Concomitant]
     Active Substance: PRAMIPEXOLE DIHYDROCHLORIDE
     Dosage: 1 MILLIGRAM (1 MG TABLET TAKE ONE TABLET BY MOUTH EVERY DAY)
  42. EFFIENT [Concomitant]
     Active Substance: PRASUGREL HYDROCHLORIDE
     Dosage: 5 MILLIGRAM, QD, TAKE 1 TABLET (5 MG TOTAL) BY MOUTH DAILY
     Route: 048
  43. SEROQUEL [Concomitant]
     Active Substance: QUETIAPINE FUMARATE
     Dosage: 50 MILLIGRAM, QD (TAKE 1 TABLET (50 MG TOTAL) BY MOUTH EVERY NIGHT)
     Route: 048
  44. CRESTOR [Concomitant]
     Active Substance: ROSUVASTATIN CALCIUM
     Dosage: 20 MILLIGRAM, (TAKE 1 TABLET (20 MG TOTAL) BY MOUTH EVERY NIGHT)
     Route: 048
  45. ALDACTONE [Concomitant]
     Active Substance: SPIRONOLACTONE
     Dosage: 25 MILLIGRAM, QD
     Route: 048
  46. CITALOPRAM [Concomitant]
     Active Substance: CITALOPRAM
  47. SPIRONOLACTONE [Concomitant]
     Active Substance: SPIRONOLACTONE

REACTIONS (3)
  - Death [Recovered/Resolved]
  - Acute kidney injury [Recovered/Resolved]
  - Dehydration [Recovered/Resolved]

NARRATIVE: CASE EVENT DATE: 20241002
